FAERS Safety Report 10578723 (Version 1)
Quarter: 2014Q4

REPORT INFORMATION
  Report Type: Spontaneous
  Country: FR (occurrence: FR)
  Receive Date: 20141112
  Receipt Date: 20141112
  Transmission Date: 20150529
  Serious: Yes (Hospitalization)
  Sender: FDA-Public Use
  Company Number: FR-TEVA-521257ISR

PATIENT
  Age: 74 Year
  Sex: Female

DRUGS (5)
  1. IXPRIM [Suspect]
     Active Substance: ACETAMINOPHEN\TRAMADOL HYDROCHLORIDE
     Indication: PAIN
     Dosage: 6 DOSAGE FORMS DAILY;
     Route: 048
     Dates: start: 20131102, end: 20131104
  2. PREVISCAN [Concomitant]
     Active Substance: FLUINDIONE
  3. DOMPERIDONE [Suspect]
     Active Substance: DOMPERIDONE
     Route: 048
  4. CARBIDOPA AND LEVODOPA [Suspect]
     Active Substance: CARBIDOPA\LEVODOPA
     Indication: DEMENTIA WITH LEWY BODIES
     Dosage: 200 MILLIGRAM DAILY;
     Route: 048
  5. EXELON [Suspect]
     Active Substance: RIVASTIGMINE TARTRATE
     Indication: DEMENTIA WITH LEWY BODIES
     Dosage: 1 DOSAGE FORMS DAILY;
     Route: 062

REACTIONS (3)
  - Haematoma [Unknown]
  - Somnolence [Recovered/Resolved]
  - Depressed level of consciousness [Recovered/Resolved]

NARRATIVE: CASE EVENT DATE: 20131103
